FAERS Safety Report 5188622-4 (Version None)
Quarter: 2006Q4

REPORT INFORMATION
  Report Type: 
  Country: None (occurrence: None)
  Receive Date: 20061214
  Receipt Date: 20061201
  Transmission Date: 20070319
  Serious: Yes (Hospitalization)
  Sender: FDA-Public Use
  Company Number: 2006149524

PATIENT
  Age: 49 Year
  Sex: Female
  Weight: 108.8633 kg

DRUGS (10)
  1. CHANTIX [Suspect]
     Indication: SMOKING CESSATION THERAPY
     Dates: start: 20060101
  2. SPIRIVA [Concomitant]
  3. ALBUTEROL [Concomitant]
  4. ACCOLATE [Concomitant]
  5. PROTONIX [Concomitant]
  6. VIVELLE-DOT [Concomitant]
  7. OXYBUTYNIN CHLORIDE [Concomitant]
  8. PRAVASTATIN [Concomitant]
  9. CYCLOBENZAPRINE HCL [Concomitant]
  10. EFFEXOR XR [Concomitant]

REACTIONS (3)
  - ASTHMA [None]
  - CHEST PAIN [None]
  - LUNG INFECTION [None]
